FAERS Safety Report 8785294 (Version 1)
Quarter: 2012Q4

REPORT INFORMATION
  Report Type: 
  Country: US (occurrence: US)
  Receive Date: 20120914
  Receipt Date: 20120914
  Transmission Date: 20130627
  Serious: Yes (Other)
  Sender: FDA-Public Use
  Company Number: US-ASTRAZENECA-2012SE70152

PATIENT
  Age: 57 Year
  Sex: Male
  Weight: 68 kg

DRUGS (2)
  1. SEROQUEL [Suspect]
     Indication: NERVOUS SYSTEM DISORDER
     Dosage: at night
     Route: 048
  2. SEROQUEL [Suspect]
     Indication: NERVOUS SYSTEM DISORDER
     Dosage: at night
     Route: 048
     Dates: end: 201208

REACTIONS (4)
  - Myocardial infarction [Unknown]
  - Sleep disorder [Unknown]
  - Dyskinesia [Unknown]
  - Off label use [Unknown]
